FAERS Safety Report 7513421-5 (Version None)
Quarter: 2011Q2

REPORT INFORMATION
  Report Type: 
  Country: None (occurrence: None)
  Receive Date: 20110531
  Receipt Date: 20110518
  Transmission Date: 20111010
  Serious: Yes (Other)
  Sender: FDA-Public Use
  Company Number: DE-UCBSA-023882

PATIENT
  Sex: Female

DRUGS (1)
  1. CIMZIA [Suspect]
     Indication: JUVENILE ARTHRITIS
     Dosage: SINGLE DOSE
     Route: 058

REACTIONS (1)
  - PAIN OF SKIN [None]
